FAERS Safety Report 12607982 (Version 1)
Quarter: 2016Q3

REPORT INFORMATION
  Report Type: Report from Study
  Country: VE (occurrence: VE)
  Receive Date: 20160729
  Receipt Date: 20160729
  Transmission Date: 20161109
  Serious: Yes (Other)
  Sender: FDA-Public Use
  Company Number: PHHY2016VE103688

PATIENT
  Sex: Male

DRUGS (2)
  1. HYDREA [Concomitant]
     Active Substance: HYDROXYUREA
     Indication: HAEMOGLOBIN ABNORMAL
     Dosage: 3000 MG, QD
     Route: 065
  2. TASIGNA [Suspect]
     Active Substance: NILOTINIB
     Indication: HAEMOGLOBIN ABNORMAL
     Dosage: 800 MG, QD
     Route: 048

REACTIONS (3)
  - White blood cell count increased [Recovering/Resolving]
  - Decreased immune responsiveness [Recovering/Resolving]
  - Product use issue [Unknown]
